FAERS Safety Report 8229552-0 (Version None)
Quarter: 2012Q1

REPORT INFORMATION
  Report Type: 
  Country: None (occurrence: None)
  Receive Date: 20120322
  Receipt Date: 20120319
  Transmission Date: 20120608
  Serious: Yes (Congenital Anomaly, Other)
  Sender: FDA-Public Use
  Company Number: GB-PFIZER INC-2009194257

PATIENT
  Sex: Male

DRUGS (7)
  1. QUETIAPINE FUMARATE [Suspect]
     Indication: BIPOLAR DISORDER
     Dosage: 100 MG, UNK
     Route: 064
     Dates: start: 20080421, end: 20080616
  2. LITHIUM CARBONATE [Suspect]
     Indication: BIPOLAR DISORDER
     Dosage: 1200 MG
     Route: 064
  3. REBOXETINE [Suspect]
     Indication: BIPOLAR DISORDER
     Dosage: 4 MG, UNK
     Route: 064
     Dates: end: 20080529
  4. AMOXICILLIN [Suspect]
     Dosage: 250 MG, 3X/DAY
     Route: 064
     Dates: start: 20080707, end: 20080714
  5. VENLAFAXINE HCL [Suspect]
     Indication: BIPOLAR DISORDER
     Dosage: 150 MG, UNK
     Route: 064
  6. IRON [Suspect]
     Dosage: 200 MG, 2X/DAY
     Route: 064
     Dates: start: 20081006
  7. CODEINE [Suspect]
     Dosage: 30 MG, AS NEEDED
     Route: 064

REACTIONS (2)
  - MATERNAL EXPOSURE TIMING UNSPECIFIED [None]
  - PIERRE ROBIN SYNDROME [None]
